FAERS Safety Report 8555298-5 (Version None)
Quarter: 2012Q3

REPORT INFORMATION
  Report Type: 
  Country: None (occurrence: None)
  Receive Date: 20120731
  Receipt Date: 20110825
  Transmission Date: 20120928
  Serious: No
  Sender: FDA-Public Use
  Company Number: US-ASTRAZENECA-2011SE51588

PATIENT
  Sex: Male

DRUGS (37)
  1. FUROSEMIDE [Concomitant]
     Route: 048
     Dates: start: 20110811
  2. MECLIZINE [Concomitant]
     Indication: DIZZINESS
     Route: 048
  3. MECLIZINE [Concomitant]
     Dosage: 1 TABLET THREE TIMES AS NEEDED
     Route: 048
     Dates: start: 20110426
  4. SEROQUEL [Suspect]
     Route: 048
     Dates: start: 20110426
  5. FUROSEMIDE [Concomitant]
     Route: 048
  6. HUMALOG [Concomitant]
     Indication: DIABETES MELLITUS INADEQUATE CONTROL
     Dosage: 115 UNITS SQ IN THE MORNING AND 115 UNITS SQ IN THE EVENING
     Route: 058
     Dates: start: 20110811
  7. VENTOLIN HFA [Concomitant]
     Indication: ASTHMA
  8. VIAGRA [Concomitant]
     Indication: ORGANIC ERECTILE DYSFUNCTION
     Route: 048
  9. ADVAIR DISKUS 100/50 [Concomitant]
     Indication: ASTHMA
  10. DUONEB [Concomitant]
     Indication: ASTHMA
     Dosage: 0.5+3 MG; 1 APPLICATION BY NEBULIZER 4 TIMES A DAY
     Dates: start: 20110218
  11. DUONEB [Concomitant]
     Indication: CHRONIC OBSTRUCTIVE PULMONARY DISEASE
     Dosage: 0.5+3 MG; 1 APPLICATION BY NEBULIZER 4 TIMES A DAY
     Dates: start: 20110218
  12. MAXZIDE [Concomitant]
     Dosage: 75+50 MG; HALF A TABLET DAILY
     Route: 048
     Dates: start: 20110426
  13. MECLIZINE [Concomitant]
     Dosage: 1 TABLET THREE TIMES AS NEEDED
     Route: 048
     Dates: start: 20110426
  14. VENTOLIN HFA [Concomitant]
     Indication: CHRONIC OBSTRUCTIVE PULMONARY DISEASE
  15. VENTOLIN HFA [Concomitant]
     Dosage: 2 PUFFS INHALATION EVERY FOUR HOURS AS NEEDED, USE AS NEEDED IN BETWEEN NEBULIZER TREATMENTS
     Dates: start: 20110218
  16. VENTOLIN HFA [Concomitant]
     Dosage: 2 PUFFS INHALATION EVERY FOUR HOURS AS NEEDED, USE AS NEEDED IN BETWEEN NEBULIZER TREATMENTS
     Dates: start: 20110218
  17. VIAGRA [Concomitant]
     Dosage: 1 TABLET ONCE DAILY AS NEEDED 1 HOUR BEFORE INTERCOURSE
     Route: 048
     Dates: start: 20110621
  18. VYTORIN [Concomitant]
     Indication: HYPERLIPIDAEMIA
     Route: 048
  19. SEROQUEL [Suspect]
     Indication: INSOMNIA
     Route: 048
  20. VYTORIN [Concomitant]
     Dosage: 10+80 MG; 1 TABLET DAILY
     Route: 048
     Dates: start: 20110426
  21. CORTISPORIN [Concomitant]
     Indication: OTITIS EXTERNA
     Dosage: 3 DROPS RIGHT EAR 4 TIMES A DAY
     Dates: start: 20110728
  22. ECONAZOLE [Concomitant]
     Dosage: TWO TIMES A DAY
     Route: 061
     Dates: start: 20100630
  23. HUMALOG KWIKPEN [Concomitant]
     Dosage: 10UNITS BEFORE NOON AND SUPPER AND TITRATE UP TO KEEP GLUCOSE 100-150 1-2 HOURS AFTER MEAL
     Route: 058
     Dates: start: 20110811
  24. MECLIZINE [Concomitant]
     Indication: VERTIGO
     Route: 048
  25. SEROQUEL [Suspect]
     Indication: DEPRESSION
     Route: 048
  26. ADVAIR DISKUS 100/50 [Concomitant]
     Dosage: 250+50 MCG; 2 PUFFS BY MOUTH TWO TIMES A DAY
     Dates: start: 20110721
  27. ATIVAN [Concomitant]
     Route: 048
  28. SEROQUEL [Suspect]
     Indication: BIPOLAR DISORDER
     Route: 048
  29. SEROQUEL [Suspect]
     Route: 048
     Dates: start: 20110426
  30. DOXYCYCLINE HYCLATE [Concomitant]
     Indication: OTITIS MEDIA
     Route: 048
     Dates: start: 20110728
  31. ECONAZOLE [Concomitant]
     Indication: TINEA PEDIS
     Route: 061
  32. SEROQUEL [Suspect]
     Route: 048
     Dates: start: 20110426
  33. ATIVAN [Concomitant]
     Dosage: 1 TABLET 6 HOURS AS NEEDED
     Route: 048
     Dates: start: 20110621
  34. LOSARTAN POTASSIUM [Concomitant]
     Indication: ESSENTIAL HYPERTENSION
     Route: 048
  35. LOSARTAN POTASSIUM [Concomitant]
     Route: 048
     Dates: start: 20110811
  36. MAXZIDE [Concomitant]
     Indication: PROPHYLAXIS
     Route: 048
  37. SPIRIVA WITH HANDIHALER [Concomitant]
     Dosage: 1 CAP INHALATION DAILY
     Dates: start: 20110620

REACTIONS (10)
  - CHRONIC OBSTRUCTIVE PULMONARY DISEASE [None]
  - HYPERLIPIDAEMIA [None]
  - ESSENTIAL HYPERTENSION [None]
  - ASTHMA [None]
  - OFF LABEL USE [None]
  - ORGANIC ERECTILE DYSFUNCTION [None]
  - OTITIS EXTERNA [None]
  - TINEA PEDIS [None]
  - OTITIS MEDIA [None]
  - DIABETES MELLITUS INADEQUATE CONTROL [None]
